FAERS Safety Report 6086057-3 (Version None)
Quarter: 2009Q1

REPORT INFORMATION
  Report Type: 
  Country: None (occurrence: None)
  Receive Date: 20090220
  Receipt Date: 20090209
  Transmission Date: 20090719
  Serious: Yes (Other)
  Sender: FDA-Public Use
  Company Number: FR-JNJFOC-20081003555

PATIENT
  Sex: Male

DRUGS (5)
  1. REMICADE [Suspect]
     Route: 042
  2. REMICADE [Suspect]
     Route: 042
  3. REMICADE [Suspect]
     Indication: CROHN'S DISEASE
     Route: 042
  4. THYROXINE [Concomitant]
  5. LOPERAMIDE HCL [Concomitant]

REACTIONS (2)
  - CIRCULATORY COLLAPSE [None]
  - NERVOUS SYSTEM DISORDER [None]
